FAERS Safety Report 9807388 (Version 3)
Quarter: 2014Q1

REPORT INFORMATION
  Report Type: Spontaneous
  Country: CH (occurrence: CH)
  Receive Date: 20140110
  Receipt Date: 20140124
  Transmission Date: 20141002
  Serious: Yes (Other)
  Sender: FDA-Public Use
  Company Number: CH-RANBAXY-2013RR-76403

PATIENT
  Age: 45 Year
  Sex: Male

DRUGS (7)
  1. SUMATRIPTAN [Suspect]
     Indication: MIGRAINE
     Dosage: 50 MG AS NEEDED
     Route: 065
  2. SUMATRIPTAN [Suspect]
     Indication: HEADACHE
     Dosage: 50MG EVERY 3-4 HOURS
     Route: 065
  3. VENLAFAXINE [Suspect]
     Indication: DEPRESSION
     Dosage: 75 MG, QD
     Route: 065
  4. CODEINE [Concomitant]
     Indication: PAIN MANAGEMENT
     Dosage: 30 MG, UNK
     Route: 065
  5. PARACETAMOL [Concomitant]
     Indication: PAIN MANAGEMENT
     Dosage: 500 MG, UNK
     Route: 065
  6. METAMIZOLE [Concomitant]
     Indication: PAIN MANAGEMENT
     Dosage: 500 MG, UNK
     Route: 065
  7. ZOLPIDEM [Concomitant]
     Indication: SLEEP DISORDER
     Dosage: 10 MG, PRN
     Route: 065

REACTIONS (2)
  - Serotonin syndrome [Recovered/Resolved]
  - Accidental overdose [Recovered/Resolved]
